FAERS Safety Report 11387530 (Version 2)
Quarter: 2015Q3

REPORT INFORMATION
  Report Type: Spontaneous
  Country: US (occurrence: US)
  Receive Date: 20150817
  Receipt Date: 20150818
  Transmission Date: 20151125
  Serious: Yes (Hospitalization, Disabling, Other)
  Sender: FDA-Public Use
  Company Number: US-009507513-1207USA00005

PATIENT
  Sex: Female

DRUGS (7)
  1. ALENDRONATE SODIUM. [Suspect]
     Active Substance: ALENDRONATE SODIUM
     Indication: BONE DENSITY DECREASED
     Dosage: 70 MG, UNKNOWN
     Route: 048
     Dates: start: 20091222, end: 2011
  2. FOSAMAX [Suspect]
     Active Substance: ALENDRONATE SODIUM
     Dosage: 70 MG, UNK
     Route: 048
     Dates: start: 20061019, end: 20070317
  3. FOSAMAX [Suspect]
     Active Substance: ALENDRONATE SODIUM
     Indication: BONE DENSITY DECREASED
     Dosage: 70 MG, UNKNOWN
     Route: 048
     Dates: start: 20050228, end: 2007
  4. ALENDRONATE SODIUM. [Suspect]
     Active Substance: ALENDRONATE SODIUM
     Indication: BONE DENSITY DECREASED
     Dosage: 70 MG, UNKNOWN
     Route: 048
     Dates: start: 20090331, end: 2009
  5. BONIVA [Suspect]
     Active Substance: IBANDRONATE SODIUM
     Indication: BONE DENSITY DECREASED
     Dosage: UNK, UNKNOWN
     Route: 065
  6. ALENDRONATE SODIUM. [Suspect]
     Active Substance: ALENDRONATE SODIUM
     Indication: BONE DENSITY DECREASED
     Dosage: 70 MG, UNKNOWN
     Route: 048
     Dates: start: 20110110
  7. FOSAMAX [Suspect]
     Active Substance: ALENDRONATE SODIUM
     Dosage: 70 MG, UNK
     Route: 048
     Dates: start: 20070313, end: 20071221

REACTIONS (16)
  - Dyslipidaemia [Unknown]
  - Femur fracture [Unknown]
  - Bone disorder [Unknown]
  - Urinary tract infection [Unknown]
  - Dehydration [Unknown]
  - Impaired healing [Unknown]
  - Fracture nonunion [Unknown]
  - Device failure [Unknown]
  - Fall [Unknown]
  - Insomnia [Unknown]
  - Joint effusion [Unknown]
  - Fracture nonunion [Unknown]
  - Radius fracture [Unknown]
  - Pain [Unknown]
  - Rash [Unknown]
  - Weight fluctuation [Unknown]

NARRATIVE: CASE EVENT DATE: 20091206
